FAERS Safety Report 13299655 (Version 2)
Quarter: 2017Q1

REPORT INFORMATION
  Report Type: Spontaneous
  Country: US (occurrence: US)
  Receive Date: 20170306
  Receipt Date: 20170315
  Transmission Date: 20170428
  Serious: Yes (Other)
  Sender: FDA-Public Use
  Company Number: US-BAUSCH-BL-2017-005714

PATIENT
  Age: 52 Year
  Sex: Male

DRUGS (5)
  1. RUCONEST [Suspect]
     Active Substance: HUMAN C1-ESTERASE INHIBITOR
     Indication: COMPLEMENT FACTOR ABNORMAL
     Dosage: ONCE TO TWICE A WEEK
     Route: 042
     Dates: start: 201611
  2. FIRAZYR [Concomitant]
     Active Substance: ICATIBANT ACETATE
     Dosage: 1 DOSE OF FIRAZYR
     Dates: start: 20170301
  3. XARELTO [Suspect]
     Active Substance: RIVAROXABAN
     Indication: THROMBOSIS
     Route: 065
  4. BERINERT [Concomitant]
     Active Substance: HUMAN C1-ESTERASE INHIBITOR
     Indication: ABDOMINAL DISTENSION
     Dosage: 1 DOSE OF BERINERT
  5. FIRAZYR [Concomitant]
     Active Substance: ICATIBANT ACETATE
     Indication: ABDOMINAL DISTENSION
     Dosage: 1 DOSE OF FIRAZYR

REACTIONS (2)
  - Malaise [Unknown]
  - Thrombosis [Unknown]

NARRATIVE: CASE EVENT DATE: 201702
